FAERS Safety Report 14159231 (Version 2)
Quarter: 2018Q1

REPORT INFORMATION
  Report Type: Spontaneous
  Country: IT (occurrence: IT)
  Receive Date: 20171103
  Receipt Date: 20180208
  Transmission Date: 20180508
  Serious: Yes (Death, Other)
  Sender: FDA-Public Use
  Company Number: IT-MYLANLABS-2017M1068528

PATIENT
  Age: 64 Year
  Sex: Male

DRUGS (3)
  1. DELTACORTENE [Suspect]
     Active Substance: PREDNISONE
     Indication: VANISHING BILE DUCT SYNDROME
     Dosage: 1 MG, QD
     Route: 048
  2. PREDNISONE. [Suspect]
     Active Substance: PREDNISONE
     Indication: VANISHING BILE DUCT SYNDROME
     Dosage: 1 MG/KG DAILY
     Route: 048
  3. URSODEOXYCHOLIC ACID [Suspect]
     Active Substance: URSODIOL
     Indication: VANISHING BILE DUCT SYNDROME
     Dosage: 20 MG/KG DAILY
     Route: 048

REACTIONS (4)
  - Acute hepatic failure [Fatal]
  - Condition aggravated [Fatal]
  - Drug ineffective [Fatal]
  - Vanishing bile duct syndrome [Fatal]
